FAERS Safety Report 11083028 (Version 1)
Quarter: 2015Q2

REPORT INFORMATION
  Report Type: Spontaneous
  Country: PL (occurrence: PL)
  Receive Date: 20150501
  Receipt Date: 20150501
  Transmission Date: 20150821
  Serious: Yes (Other)
  Sender: FDA-Public Use
  Company Number: PL-TEVA-557106ISR

PATIENT
  Age: 58 Year
  Sex: Female
  Weight: 70 kg

DRUGS (1)
  1. SIMWASTATYNA [Suspect]
     Active Substance: SIMVASTATIN
     Indication: HYPERCHOLESTEROLAEMIA
     Route: 048
     Dates: start: 2008, end: 201411

REACTIONS (7)
  - Dizziness [Recovered/Resolved]
  - Insomnia [Recovered/Resolved]
  - Muscle twitching [Recovered/Resolved]
  - Depressed mood [Recovered/Resolved]
  - Disturbance in attention [Recovered/Resolved]
  - Malaise [Recovered/Resolved]
  - Pain [Recovered/Resolved]

NARRATIVE: CASE EVENT DATE: 2008
